FAERS Safety Report 17708329 (Version 5)
Quarter: 2020Q2

REPORT INFORMATION
  Report Type: Report from Study
  Country: IN (occurrence: IN)
  Receive Date: 20200426
  Receipt Date: 20200522
  Transmission Date: 20200714
  Serious: Yes (Other)
  Sender: FDA-Public Use
  Company Number: NVSC2020IN038116

PATIENT
  Age: 35 Year
  Sex: Male
  Weight: 58 kg

DRUGS (2)
  1. GALVUS MET [Suspect]
     Active Substance: METFORMIN HYDROCHLORIDE\VILDAGLIPTIN
     Indication: DIABETES MELLITUS
     Dosage: 1 DF, BID (STOPPED 2 YEARS BACK) (VILDAGLIPTIN 50 MG, METFORMIN 500 MG)
     Route: 048
  2. GALVUS MET [Suspect]
     Active Substance: METFORMIN HYDROCHLORIDE\VILDAGLIPTIN
     Dosage: 1 DF, BID (50/1000 OT) (SINCE 5 YEARS)
     Route: 048

REACTIONS (10)
  - Glycosylated haemoglobin increased [Unknown]
  - Myalgia [Unknown]
  - Glomerular filtration rate increased [Unknown]
  - Hypovitaminosis [Unknown]
  - Hyperglycaemia [Unknown]
  - Blood creatinine decreased [Unknown]
  - Malaise [Not Recovered/Not Resolved]
  - Diabetes mellitus inadequate control [Unknown]
  - Chest pain [Unknown]
  - Hypertension [Unknown]

NARRATIVE: CASE EVENT DATE: 202001
